FAERS Safety Report 10109941 (Version 1)
Quarter: 2014Q2

REPORT INFORMATION
  Report Type: Spontaneous
  Country: US (occurrence: US)
  Receive Date: 20140425
  Receipt Date: 20140425
  Transmission Date: 20141212
  Serious: Yes (Other)
  Sender: FDA-Public Use
  Company Number: US-ASTRAZENECA-2014SE26826

PATIENT
  Age: 50 Year
  Sex: Male
  Weight: 96.2 kg

DRUGS (10)
  1. TENORMIN [Suspect]
     Indication: HYPERTENSION
     Route: 048
  2. SYMBICORT [Suspect]
     Indication: LUNG DISORDER
     Route: 055
  3. PRILOSEC [Suspect]
     Route: 048
  4. CRESTOR [Suspect]
     Indication: BLOOD CHOLESTEROL INCREASED
     Route: 048
  5. PROVIGIL [Suspect]
     Indication: NARCOLEPSY
     Route: 048
     Dates: start: 201310, end: 20140325
  6. INSULIN [Concomitant]
     Indication: DIABETES MELLITUS
  7. COZAAR [Concomitant]
     Indication: HYPERTENSION
  8. NEURONTIN [Concomitant]
     Indication: NEURALGIA
  9. KLONOPIN [Concomitant]
     Indication: RESTLESS LEGS SYNDROME
  10. TUDORZA [Concomitant]
     Indication: LUNG DISORDER

REACTIONS (11)
  - Hepatic neoplasm [Unknown]
  - Pulmonary mass [Unknown]
  - Urticaria [Recovering/Resolving]
  - Belligerence [Recovering/Resolving]
  - Personality change [Recovering/Resolving]
  - Abnormal behaviour [Recovering/Resolving]
  - Blood cholesterol increased [Unknown]
  - Hepatic enzyme increased [Unknown]
  - Somnolence [Recovering/Resolving]
  - Therapeutic response changed [Recovered/Resolved]
  - Drug ineffective [Recovering/Resolving]
